FAERS Safety Report 17434970 (Version 1)
Quarter: 2020Q1

REPORT INFORMATION
  Report Type: Spontaneous
  Country: US (occurrence: US)
  Receive Date: 20200203
  Receipt Date: 20200203
  Transmission Date: 20200409
  Serious: Yes (Death, Hospitalization)
  Sender: FDA-Public Use
  Company Number: None

PATIENT
  Age: 91 Year
  Sex: Male

DRUGS (4)
  1. METOPROLOL (METOPROLOL TARTRATE 1MG/ML INJ) [Suspect]
     Active Substance: METOPROLOL TARTRATE
     Indication: EXTRASYSTOLES
     Route: 042
     Dates: start: 20200106, end: 20200106
  2. METOPROLOL (METOPROLOL SUCCINATE 50MG TAB, SA) [Suspect]
     Active Substance: METOPROLOL SUCCINATE
     Indication: TACHYCARDIA
     Route: 048
     Dates: start: 20200107, end: 20200108
  3. METOPROLOL (METOPROLOL TARTRATE 1MG/ML INJ) [Suspect]
     Active Substance: METOPROLOL TARTRATE
     Indication: TACHYCARDIA
     Route: 042
     Dates: start: 20200106, end: 20200106
  4. METOPROLOL (METOPROLOL SUCCINATE 50MG TAB, SA) [Suspect]
     Active Substance: METOPROLOL SUCCINATE
     Indication: EXTRASYSTOLES
     Route: 048
     Dates: start: 20200107, end: 20200108

REACTIONS (12)
  - General physical health deterioration [None]
  - Symptom masked [None]
  - Syncope [None]
  - Bradycardia [None]
  - Pulse absent [None]
  - Sinus node dysfunction [None]
  - Aortic stenosis [None]
  - Condition aggravated [None]
  - Respiratory arrest [None]
  - Hypotension [None]
  - Cardiogenic shock [None]
  - Tachycardia [None]

NARRATIVE: CASE EVENT DATE: 20200108
